FAERS Safety Report 10502493 (Version 7)
Quarter: 2015Q2

REPORT INFORMATION
  Report Type: Report from Study
  Country: IL (occurrence: IL)
  Receive Date: 20141007
  Receipt Date: 20150630
  Transmission Date: 20150821
  Serious: Yes (Death, Life-Threatening, Hospitalization)
  Sender: FDA-Public Use
  Company Number: IL-009507513-1310ISR009616

PATIENT
  Age: 57 Year
  Sex: Female
  Weight: 61.15 kg

DRUGS (18)
  1. AUGMENTIN [Concomitant]
     Active Substance: AMOXICILLIN\CLAVULANATE POTASSIUM
     Indication: BREAST CELLULITIS
     Dosage: 1 G, BID
     Route: 042
     Dates: start: 20131003, end: 20131003
  2. HEMP [Concomitant]
     Active Substance: HEMP
     Indication: PAIN
     Dosage: 2 GTT, QD, FORMULATION: INHALANT
     Route: 055
     Dates: start: 20131001, end: 20131017
  3. BLOOD CELLS, RED [Concomitant]
     Active Substance: HUMAN BLOOD CELLS
     Indication: ANAEMIA
     Dosage: 280 ML, BID
     Route: 042
     Dates: start: 20131003, end: 20131003
  4. OXYCOD [Concomitant]
     Indication: PAIN
     Dosage: DOSE: 8ML/HOUR, QD; STRENGTH: 10 ML/HOUR
     Route: 048
     Dates: start: 201306, end: 20131017
  5. DEXAMETHASONE. [Concomitant]
     Active Substance: DEXAMETHASONE
     Indication: NAUSEA
     Dosage: 2 MG, BID
     Route: 048
     Dates: start: 20131016, end: 20131017
  6. PRAMIN [Concomitant]
     Indication: VOMITING
  7. AMITIZA [Concomitant]
     Active Substance: LUBIPROSTONE
     Indication: CONSTIPATION
     Dosage: 8 MICROGRAM, QD
     Route: 048
     Dates: start: 201309, end: 20131017
  8. LIDOCAINE (+) METHYLPREDNISOLONE ACETATE [Concomitant]
     Indication: PAIN
     Dosage: 8 ML, QD
     Route: 042
     Dates: start: 20131016, end: 20131016
  9. LOSEC (OMEPRAZOLE MAGNESIUM) [Concomitant]
     Indication: PROPHYLAXIS
     Dosage: 20 MG, QD
     Route: 048
     Dates: start: 20131002, end: 20131003
  10. LYRICA [Concomitant]
     Active Substance: PREGABALIN
     Indication: PAIN
     Dosage: 75 MG, QD
     Route: 048
     Dates: start: 20130923, end: 20131017
  11. OMEPRADEX [Concomitant]
     Active Substance: OMEPRAZOLE
     Indication: HYPERCHLORHYDRIA
     Dosage: 20 MG, QD
     Route: 048
     Dates: start: 201303, end: 20131017
  12. MARCAINE [Concomitant]
     Active Substance: BUPIVACAINE HYDROCHLORIDE
     Indication: PAIN
     Dosage: 2 ML, QD
     Route: 042
     Dates: start: 20131016, end: 20131016
  13. PEMBROLIZUMAB. [Suspect]
     Active Substance: PEMBROLIZUMAB
     Indication: BREAST CANCER
     Dosage: 10 MG/KG, Q2W
     Route: 042
     Dates: start: 20131008, end: 20131008
  14. FENTANYL. [Concomitant]
     Active Substance: FENTANYL
     Indication: PAIN
     Dosage: TOTAL DAILY DOSE: 50 MICROGRAM/H; FREQUENCY: OTHER; FORMULATION: PATCH
     Route: 061
     Dates: start: 20130916, end: 20131008
  15. PRAMIN [Concomitant]
     Indication: NAUSEA
     Dosage: 20 MG, TID
     Route: 048
     Dates: start: 201309, end: 20131017
  16. FENTANYL. [Concomitant]
     Active Substance: FENTANYL
     Indication: PAIN
     Dosage: TOTAL DAILY DOSE: 100 MICROGRAM/H, FREQUENCY: OTHER
     Route: 062
     Dates: start: 20131009, end: 20131012
  17. FENTANYL. [Concomitant]
     Active Substance: FENTANYL
     Indication: PAIN
     Dosage: TOTAL DAILY DOSE: 125 MICROGRAM/H, FREQUENCY: OTHER
     Route: 062
     Dates: start: 20131013, end: 20131017
  18. OPTALGIN [Concomitant]
     Active Substance: METAMIZOLE
     Indication: PAIN
     Dosage: 50 GTT, QD
     Route: 048
     Dates: start: 201306, end: 20131017

REACTIONS (3)
  - Disseminated intravascular coagulation [Fatal]
  - Anaemia [Not Recovered/Not Resolved]
  - Blood fibrinogen decreased [Not Recovered/Not Resolved]

NARRATIVE: CASE EVENT DATE: 20131017
